FAERS Safety Report 8925714 (Version 1)
Quarter: 2012Q4

REPORT INFORMATION
  Report Type: 
  Country: NL (occurrence: NL)
  Receive Date: 20121126
  Receipt Date: 20121126
  Transmission Date: 20130627
  Serious: Yes (Other)
  Sender: FDA-Public Use
  Company Number: PHHY2012NL084898

PATIENT
  Sex: Male

DRUGS (4)
  1. ZOMETA [Suspect]
     Indication: MULTIPLE MYELOMA
     Dosage: 4 mg / 100ml once in 28 days
  2. ZOMETA [Suspect]
     Dosage: 4 mg / 100ml once in 28 days
     Dates: start: 20120807
  3. ZOMETA [Suspect]
     Dosage: 4 mg / 100ml once in 28 days
     Dates: start: 20120905
  4. ZOMETA [Suspect]
     Dosage: 4 mg / 100ml once in 28 days
     Dates: start: 20121025

REACTIONS (2)
  - Terminal state [Not Recovered/Not Resolved]
  - General physical condition abnormal [Unknown]
